FAERS Safety Report 7357490-4 (Version None)
Quarter: 2011Q1

REPORT INFORMATION
  Report Type: 
  Country: None (occurrence: None)
  Receive Date: 20110317
  Receipt Date: 20110304
  Transmission Date: 20110831
  Serious: Yes (Hospitalization)
  Sender: FDA-Public Use
  Company Number: PHFR2011GB01304

PATIENT
  Sex: Female

DRUGS (5)
  1. CLOZARIL [Suspect]
     Dosage: 175 MG DAILY
     Route: 048
     Dates: start: 20110203, end: 20110228
  2. SIMVASTATIN [Concomitant]
     Dosage: 40 MG DAILY
     Route: 048
  3. ADCAL [Concomitant]
     Dosage: 2 DF DAILY
     Route: 048
  4. CLOZARIL [Suspect]
     Dosage: UNK
     Route: 048
     Dates: start: 20040616
  5. T4 [Concomitant]
     Dosage: 150 UG DAILY
     Route: 048

REACTIONS (4)
  - MENINGITIS VIRAL [None]
  - ENCEPHALITIS [None]
  - MENINGITIS BACTERIAL [None]
  - STATUS EPILEPTICUS [None]
